FAERS Safety Report 12140915 (Version 1)
Quarter: 2016Q1

REPORT INFORMATION
  Report Type: Spontaneous
  Country: US (occurrence: US)
  Receive Date: 20160303
  Receipt Date: 20160303
  Transmission Date: 20160526
  Serious: Yes (Other)
  Sender: FDA-Public Use
  Company Number: US-BAYER-2016-035224

PATIENT
  Age: 77 Year
  Sex: Female
  Weight: 38.55 kg

DRUGS (1)
  1. MIRALAX [Suspect]
     Active Substance: POLYETHYLENE GLYCOL 3350
     Indication: DIVERTICULITIS
     Dosage: 1 DF, QD
     Route: 048
     Dates: end: 20160220

REACTIONS (4)
  - Product use issue [None]
  - Anal haemorrhage [None]
  - Rectal haemorrhage [None]
  - Mucous stools [None]
